FAERS Safety Report 4530564-9 (Version None)
Quarter: 2004Q4

REPORT INFORMATION
  Report Type: 
  Country: None (occurrence: None)
  Receive Date: 20041216
  Receipt Date: 20041203
  Transmission Date: 20050328
  Serious: Yes (Hospitalization, Other)
  Sender: FDA-Public Use
  Company Number: 2004103901

PATIENT
  Age: 74 Year
  Sex: Female
  Weight: 57 kg

DRUGS (3)
  1. ALPRESS (PRAZOSIN) [Suspect]
     Indication: HYPERTENSION
     Dates: end: 20041101
  2. DONEPEZIL HCL [Suspect]
     Indication: ILL-DEFINED DISORDER
     Dosage: 10 MG (1 D)
     Dates: start: 20040901, end: 20041101
  3. INSULIN [Concomitant]

REACTIONS (6)
  - BLOOD GLUCOSE DECREASED [None]
  - BLOOD PRESSURE DIASTOLIC INCREASED [None]
  - CEREBRAL ATROPHY [None]
  - DEMENTIA [None]
  - DYSPNOEA [None]
  - MALAISE [None]
